FAERS Safety Report 8300653-1 (Version None)
Quarter: 2012Q2

REPORT INFORMATION
  Report Type: 
  Country: None (occurrence: None)
  Receive Date: 20120417
  Receipt Date: 20120402
  Transmission Date: 20120825
  Serious: Yes (Disabling)
  Sender: FDA-Public Use
  Company Number: AUR-APL-2012-00999

PATIENT
  Age: 80 Year
  Sex: Female

DRUGS (2)
  1. PREDNISONE TAB [Concomitant]
  2. LOSARTAN POTASSIUM [Suspect]
     Indication: HYPERTENSION

REACTIONS (13)
  - MALAISE [None]
  - REFUSAL OF TREATMENT BY PATIENT [None]
  - ARTHRALGIA [None]
  - HEADACHE [None]
  - COUGH [None]
  - ARTHRITIS [None]
  - INSOMNIA [None]
  - PAIN IN EXTREMITY [None]
  - SOMNOLENCE [None]
  - SKIN DISORDER [None]
  - MUSCULOSKELETAL PAIN [None]
  - DRUG INEFFECTIVE [None]
  - FATIGUE [None]
